FAERS Safety Report 11169189 (Version 1)
Quarter: 2015Q2

REPORT INFORMATION
  Report Type: Report from Study
  Country: TR (occurrence: TR)
  Receive Date: 20150605
  Receipt Date: 20150605
  Transmission Date: 20150821
  Serious: Yes (Other)
  Sender: FDA-Public Use
  Company Number: PHHY2015TR065755

PATIENT
  Sex: Female
  Weight: 21 kg

DRUGS (2)
  1. SOMATROPIN [Suspect]
     Active Substance: SOMATROPIN
     Indication: GROWTH HORMONE DEFICIENCY
     Dosage: 0.8 MG, QD FOR 8 DAYS
     Route: 058
     Dates: start: 20150317
  2. SOMATROPIN [Suspect]
     Active Substance: SOMATROPIN
     Dosage: 0.9 MG, QD FOR 4 DAYS
     Route: 058

REACTIONS (1)
  - Muscle hypertrophy [Unknown]
